FAERS Safety Report 4861488-5 (Version None)
Quarter: 2005Q4

REPORT INFORMATION
  Report Type: 
  Country: None (occurrence: None)
  Receive Date: 20051220
  Receipt Date: 20051207
  Transmission Date: 20060501
  Serious: Yes (Hospitalization)
  Sender: FDA-Public Use
  Company Number: FR-JNJFOC-20051103973

PATIENT
  Age: 35 Year
  Sex: Female

DRUGS (7)
  1. EPITOMAX [Suspect]
     Route: 048
  2. EPITOMAX [Suspect]
     Indication: EPILEPSY
     Route: 048
  3. DEPAKENE [Suspect]
     Route: 048
  4. DEPAKENE [Suspect]
     Indication: EPILEPSY
     Route: 048
  5. LEXOMIL [Suspect]
     Route: 048
  6. LEXOMIL [Suspect]
     Dosage: 0.5 DOSES = 0.5 TABLETS
     Route: 048
  7. STILNOX [Concomitant]
     Dosage: 1 DOSE = 1 TABLET

REACTIONS (12)
  - BLOOD PRESSURE DECREASED [None]
  - BRADYCARDIA [None]
  - COMA [None]
  - DIALYSIS [None]
  - HEPATIC FAILURE [None]
  - HYPOGLYCAEMIA [None]
  - METABOLIC ALKALOSIS [None]
  - OVERDOSE [None]
  - PROTHROMBIN LEVEL DECREASED [None]
  - SHOCK [None]
  - SUICIDE ATTEMPT [None]
  - THROMBOCYTOPENIA [None]
